FAERS Safety Report 7439687-8 (Version None)
Quarter: 2011Q2

REPORT INFORMATION
  Report Type: 
  Country: None (occurrence: None)
  Receive Date: 20110427
  Receipt Date: 20110414
  Transmission Date: 20111010
  Serious: Yes (Hospitalization, Disabling)
  Sender: FDA-Public Use
  Company Number: PHFR2011GB02575

PATIENT
  Sex: Male

DRUGS (2)
  1. CLOZARIL [Suspect]
     Indication: PARKINSON'S DISEASE
     Route: 048
     Dates: start: 20090108, end: 20110407
  2. CLOZARIL [Suspect]
     Indication: PSYCHOTIC DISORDER

REACTIONS (2)
  - DEHYDRATION [None]
  - UNRESPONSIVE TO STIMULI [None]
